FAERS Safety Report 10142989 (Version 5)
Quarter: 2014Q2

REPORT INFORMATION
  Report Type: Report from Study
  Country: CA (occurrence: CA)
  Receive Date: 20140430
  Receipt Date: 20140530
  Transmission Date: 20141212
  Serious: Yes (Death, Other)
  Sender: FDA-Public Use
  Company Number: CA-ROCHE-1330221

PATIENT
  Age: 56 Year
  Sex: Male
  Weight: 81 kg

DRUGS (8)
  1. AVASTIN [Suspect]
     Indication: GLIOBLASTOMA
     Route: 042
     Dates: start: 20131212
  2. AVASTIN [Suspect]
     Indication: GLIOBLASTOMA
     Route: 042
     Dates: start: 20140103
  3. AVASTIN [Suspect]
     Indication: COLORECTAL CANCER METASTATIC
     Route: 042
     Dates: start: 20140213
  4. AVASTIN [Suspect]
     Route: 042
     Dates: start: 20121004, end: 20140305
  5. DEXAMETHASONE [Concomitant]
  6. RANITIDINE [Concomitant]
  7. KEPPRA [Concomitant]
  8. IBUPROPHENUM [Concomitant]
     Indication: PAIN
     Route: 048

REACTIONS (18)
  - Chest discomfort [Recovered/Resolved]
  - Fall [Unknown]
  - Humerus fracture [Not Recovered/Not Resolved]
  - Flushing [Unknown]
  - Weight increased [Unknown]
  - Joint swelling [Unknown]
  - Lethargy [Not Recovered/Not Resolved]
  - Urinary incontinence [Not Recovered/Not Resolved]
  - Increased upper airway secretion [Not Recovered/Not Resolved]
  - Influenza like illness [Unknown]
  - Balance disorder [Unknown]
  - Haematochezia [Unknown]
  - Contusion [Unknown]
  - Hemiparesis [Unknown]
  - Laceration [Unknown]
  - Bone contusion [Unknown]
  - Jaundice [Fatal]
  - Cholangitis [Fatal]
